FAERS Safety Report 4319949-3 (Version None)
Quarter: 2004Q1

REPORT INFORMATION
  Report Type: 
  Country: None (occurrence: None)
  Receive Date: 20040317
  Receipt Date: 20040302
  Transmission Date: 20041129
  Serious: Yes (Other)
  Sender: FDA-Public Use
  Company Number: S04-USA-01209-01

PATIENT
  Age: 79 Year
  Sex: Female

DRUGS (5)
  1. LEXAPRO [Suspect]
     Indication: DEPRESSION POSTOPERATIVE
     Dosage: 10 MG QD PO
     Route: 048
     Dates: start: 20030201, end: 20040228
  2. MAXZIDE [Concomitant]
  3. SYNTHROID [Concomitant]
  4. FOLIC ACID [Concomitant]
  5. METHOTREXATE [Concomitant]

REACTIONS (6)
  - ANKLE FRACTURE [None]
  - BLOOD PRESSURE INCREASED [None]
  - FALL [None]
  - INJURY [None]
  - SELF-MEDICATION [None]
  - THYROID NEOPLASM [None]
